FAERS Safety Report 17889982 (Version 1)
Quarter: 2020Q2

REPORT INFORMATION
  Report Type: Spontaneous
  Country: CA (occurrence: CA)
  Receive Date: 20200612
  Receipt Date: 20200612
  Transmission Date: 20200714
  Serious: Yes (Death)
  Sender: FDA-Public Use
  Company Number: CA-PFIZER INC-2019543506

PATIENT
  Age: 68 Year
  Sex: Male

DRUGS (17)
  1. BETADERM [BETAMETHASONE VALERATE] [Concomitant]
  2. TOPISONE [Concomitant]
  3. FRAGMIN [Concomitant]
     Active Substance: DALTEPARIN SODIUM
  4. ALMAGEL A [ALGELDRATE;BENZOCAINE;MAGNESIUM HYDROXIDE] [Concomitant]
  5. TARO-SONE [Concomitant]
  6. ALFUZOSIN [Concomitant]
     Active Substance: ALFUZOSIN
  7. URISEC [Concomitant]
  8. HYDROMORPHONE [Concomitant]
     Active Substance: HYDROMORPHONE
  9. MOMETASONE [Concomitant]
     Active Substance: MOMETASONE
  10. INLYTA [Suspect]
     Active Substance: AXITINIB
     Dosage: 5 MG, UNK
     Dates: start: 20191223
  11. PANTOPRAZOLE [Concomitant]
     Active Substance: PANTOPRAZOLE
  12. TYLENOL [Concomitant]
     Active Substance: ACETAMINOPHEN
  13. CLINDAMYCIN. [Concomitant]
     Active Substance: CLINDAMYCIN
  14. COLACE [Concomitant]
     Active Substance: DOCUSATE SODIUM
  15. INLYTA [Suspect]
     Active Substance: AXITINIB
     Dosage: 7 MG, UNK
     Dates: start: 20191223
  16. ACETYLCYSTEINE. [Concomitant]
     Active Substance: ACETYLCYSTEINE
  17. GLAXAL BASE [Concomitant]

REACTIONS (1)
  - Death [Fatal]
